FAERS Safety Report 9607001 (Version 1)
Quarter: 2013Q4

REPORT INFORMATION
  Report Type: Report from Study
  Country: DE (occurrence: DE)
  Receive Date: 20131009
  Receipt Date: 20131009
  Transmission Date: 20140711
  Serious: Yes (Hospitalization)
  Sender: FDA-Public Use
  Company Number: DE-ROCHE-1283494

PATIENT
  Age: 63 Year
  Sex: Male
  Weight: 96 kg

DRUGS (3)
  1. RITUXIMAB [Suspect]
     Indication: B-CELL LYMPHOMA
     Dosage: DATE OF LAST DOSE PRIOR TO SAE: 22/JUL/2013
     Route: 042
     Dates: start: 20130722
  2. PANTOZOL (GERMANY) [Concomitant]
     Route: 065
     Dates: start: 20130529
  3. THYRONAJOD [Concomitant]
     Route: 065
     Dates: start: 2002

REACTIONS (2)
  - Cholecystitis [Recovering/Resolving]
  - Atrial fibrillation [Recovered/Resolved]
